FAERS Safety Report 11239547 (Version 2)
Quarter: 2015Q3

REPORT INFORMATION
  Report Type: Spontaneous
  Country: US (occurrence: US)
  Receive Date: 20150706
  Receipt Date: 20150910
  Transmission Date: 20151125
  Serious: No
  Sender: FDA-Public Use
  Company Number: US-PFIZER INC-2015217421

PATIENT
  Age: 74 Year
  Sex: Male
  Weight: 70.75 kg

DRUGS (4)
  1. SUTENT [Suspect]
     Active Substance: SUNITINIB MALATE
     Dosage: 25 MG, 1X/DAY
     Route: 048
     Dates: end: 20150720
  2. SUTENT [Suspect]
     Active Substance: SUNITINIB MALATE
     Indication: THYROID CANCER
     Dosage: 25 MG, DAILY
     Route: 048
     Dates: start: 20140718, end: 20150617
  3. SUTENT [Suspect]
     Active Substance: SUNITINIB MALATE
     Dosage: 12.5 MG, ALTERNATE DAY
     Route: 048
     Dates: end: 20150720
  4. SUTENT [Suspect]
     Active Substance: SUNITINIB MALATE
     Dosage: 12.5 MG, ALTERNATE DAY
     Route: 048
     Dates: start: 20140718, end: 20150617

REACTIONS (6)
  - Asthenia [Unknown]
  - Dizziness [Unknown]
  - Disorientation [Unknown]
  - Product use issue [Unknown]
  - Tremor [Unknown]
  - Cold sweat [Unknown]

NARRATIVE: CASE EVENT DATE: 20150617
